FAERS Safety Report 21313050 (Version 2)
Quarter: 2023Q1

REPORT INFORMATION
  Report Type: Report from Study
  Country: US (occurrence: US)
  Receive Date: 20220909
  Receipt Date: 20230303
  Transmission Date: 20230418
  Serious: Yes (Death, Hospitalization)
  Sender: FDA-Public Use
  Company Number: US-SERVIER-S22009176

PATIENT

DRUGS (4)
  1. PEGASPARGASE [Suspect]
     Active Substance: PEGASPARGASE
     Indication: B precursor type acute leukaemia
     Dosage: 3750 [IU], EVERY 3 WEEKS, ON D2 AND D22
     Route: 042
     Dates: start: 20220713, end: 20220802
  2. RITUXIMAB [Suspect]
     Active Substance: RITUXIMAB
     Indication: B precursor type acute leukaemia
     Dosage: 375 MG/M2, ON D1 AND 8
     Route: 042
     Dates: start: 20220712, end: 20220722
  3. METHOTREXATE [Suspect]
     Active Substance: METHOTREXATE
     Indication: B precursor type acute leukaemia
     Dosage: 100 MG/M2, ON D1, 11, 21,31, 41
     Route: 042
     Dates: start: 20220712, end: 20220801
  4. VINCRISTINE SULFATE [Suspect]
     Active Substance: VINCRISTINE SULFATE
     Indication: B precursor type acute leukaemia
     Dosage: 2 MG, ON D1, 11, 21, 31, 41
     Route: 042
     Dates: start: 20220712, end: 2022

REACTIONS (3)
  - Sepsis [Fatal]
  - Hyperbilirubinaemia [Unknown]
  - Acute kidney injury [Unknown]

NARRATIVE: CASE EVENT DATE: 20220803
